FAERS Safety Report 6843960-1 (Version None)
Quarter: 2010Q3

REPORT INFORMATION
  Report Type: 
  Country: None (occurrence: None)
  Receive Date: 20100715
  Receipt Date: 20100708
  Transmission Date: 20110219
  Serious: Yes (Other)
  Sender: FDA-Public Use
  Company Number: JP-PFIZER INC-2010084964

PATIENT
  Sex: Female

DRUGS (2)
  1. DEPO-MEDROL [Suspect]
     Dosage: UNK
  2. CARBOCAIN [Concomitant]
     Indication: PAIN MANAGEMENT
     Dosage: UNK

REACTIONS (6)
  - BLOOD PRESSURE DECREASED [None]
  - GASTRIC POLYPS [None]
  - GASTROINTESTINAL HAEMORRHAGE [None]
  - HAEMATEMESIS [None]
  - MALAISE [None]
  - PALPITATIONS [None]
